FAERS Safety Report 7823812-0 (Version None)
Quarter: 2011Q4

REPORT INFORMATION
  Report Type: 
  Country: None (occurrence: None)
  Receive Date: 20111019
  Receipt Date: 20111011
  Transmission Date: 20120403
  Serious: Yes (Hospitalization)
  Sender: FDA-Public Use
  Company Number: US-ASTELLAS-2011US006171

PATIENT
  Sex: Male
  Weight: 73 kg

DRUGS (38)
  1. CISPLATIN [Suspect]
     Indication: METASTATIC NEOPLASM
  2. APREPITANT [Concomitant]
     Indication: PRODUCT USED FOR UNKNOWN INDICATION
     Dosage: 150 MG, UNKNOWN/D
     Route: 042
     Dates: start: 20110829
  3. DOCUSATE [Concomitant]
     Indication: PRODUCT USED FOR UNKNOWN INDICATION
     Dosage: 10 ML, UID/QD
  4. METOPROLOL SUCCINATE [Concomitant]
     Indication: PRODUCT USED FOR UNKNOWN INDICATION
     Dosage: 50 MG, BID
     Route: 048
     Dates: start: 20110818
  5. MORPHINE [Concomitant]
     Indication: BREAKTHROUGH PAIN
     Dosage: 1/2 7.5
     Route: 048
     Dates: start: 20110825
  6. ACTOS [Concomitant]
     Indication: PRODUCT USED FOR UNKNOWN INDICATION
     Dosage: 45 MG, UID/QD
     Route: 048
  7. ZOFRAN [Concomitant]
     Indication: PRODUCT USED FOR UNKNOWN INDICATION
     Dosage: 8 MG, PRN
     Route: 048
     Dates: start: 20110818
  8. ONDANSETRON HCL [Concomitant]
     Indication: NAUSEA
     Dosage: 8 MG, PRN
     Route: 042
     Dates: start: 20110829
  9. DOCETAXEL [Suspect]
     Indication: METASTATIC NEOPLASM
  10. CISPLATIN [Suspect]
     Indication: TONSIL CANCER
     Dosage: 75 MG/M2, Q3W
     Route: 042
     Dates: start: 20110829
  11. COMPAZINE [Concomitant]
     Indication: NAUSEA
     Dosage: 10MG PER TUBE,  BID
     Route: 050
  12. ABH [Concomitant]
     Indication: NAUSEA
     Dosage: 1 DF, PRN
     Route: 048
  13. COQ10 [Concomitant]
     Indication: PRODUCT USED FOR UNKNOWN INDICATION
     Dosage: 2 DF, UID/QD
     Route: 048
     Dates: start: 20110818
  14. MIRALAX [Concomitant]
     Indication: CONSTIPATION
     Dosage: 17 G, UID/QD
     Route: 048
     Dates: start: 20110825
  15. LOVAZA [Concomitant]
     Indication: PRODUCT USED FOR UNKNOWN INDICATION
     Dosage: 2 DF, BID
     Route: 048
     Dates: start: 20110818
  16. PROTONIX [Concomitant]
     Indication: PRODUCT USED FOR UNKNOWN INDICATION
     Dosage: 1 DF, UID/QD
     Route: 048
     Dates: start: 20110825
  17. VITAMIN D [Concomitant]
     Indication: PRODUCT USED FOR UNKNOWN INDICATION
     Dosage: 400 MG, UID/QD
     Route: 048
     Dates: start: 20110818
  18. DEXAMETHASONE SODIUM PHOSPHATE [Concomitant]
     Indication: PRODUCT USED FOR UNKNOWN INDICATION
     Dosage: 12 MG, UNKNOWN/D
     Route: 042
  19. LISINOPRIL [Concomitant]
     Dosage: 20 MG, UID/QD
     Route: 048
     Dates: start: 20110829
  20. SODIUM CHLORIDE INJ [Concomitant]
     Indication: PRODUCT USED FOR UNKNOWN INDICATION
     Dosage: 1000 ML + 500 ML, UNK
     Route: 042
     Dates: start: 20110829
  21. ERLOTINIB HYDROCHLORIDE [Suspect]
     Indication: TONSIL CANCER
     Dosage: 150 MG, UID/QD
     Route: 048
     Dates: start: 20110829, end: 20110914
  22. DOCETAXEL [Suspect]
     Indication: TONSIL CANCER
     Dosage: 75 MG/M2, Q3W
     Route: 042
     Dates: start: 20110829
  23. MORPHINE [Concomitant]
     Dosage: 15 MG, Q12 HOURS
     Route: 048
  24. CHROMIUM PICOLINATE [Concomitant]
     Indication: PRODUCT USED FOR UNKNOWN INDICATION
     Dosage: 500 UG, UID/QD
     Route: 048
     Dates: start: 20110818
  25. MAGNESIUM [Concomitant]
     Indication: PRODUCT USED FOR UNKNOWN INDICATION
     Dosage: 150 MG, UID/QD
     Route: 048
     Dates: start: 20110818
  26. MANNITOL [Concomitant]
     Indication: PRODUCT USED FOR UNKNOWN INDICATION
     Dosage: 25 G, UNKNOWN/D
     Route: 042
     Dates: start: 20110829
  27. DOXYLAMINE SUCCINATE [Concomitant]
     Indication: PRODUCT USED FOR UNKNOWN INDICATION
     Dosage: 25 MG, UID/QD
     Route: 048
  28. LISINOPRIL [Concomitant]
     Indication: PRODUCT USED FOR UNKNOWN INDICATION
     Dosage: 10-20 MG, UID/QD
     Route: 048
     Dates: start: 20110818
  29. MORPHINE [Concomitant]
     Dosage: 2 MG, PRN
     Route: 048
  30. CALCIUM CARBONATE [Concomitant]
     Indication: PRODUCT USED FOR UNKNOWN INDICATION
     Dosage: 300 MG, UID/QD
     Route: 048
     Dates: start: 20110818
  31. MS CONTIN [Concomitant]
     Indication: PAIN
     Dosage: 2 DF, Q12 HOURS
     Route: 048
     Dates: start: 20110825
  32. MS CONTIN [Concomitant]
     Dosage: 15 MG, Q12 HOURS
     Route: 048
  33. SENNA [Concomitant]
     Indication: PRODUCT USED FOR UNKNOWN INDICATION
     Dosage: 8.8MG/5ML, 10 ML, BID
     Route: 050
  34. ERLOTINIB HYDROCHLORIDE [Suspect]
     Indication: METASTATIC NEOPLASM
     Dosage: 150 MG, UID/QD
     Route: 048
     Dates: start: 20110916
  35. DEXAMETHASONE [Concomitant]
     Indication: PAIN
     Dosage: 1-1 1/2 DF, BID
     Route: 065
     Dates: start: 20110825
  36. MORPHINE [Concomitant]
     Dosage: 15 MG, 1/2 TAB BY TUBE,  QID
     Route: 050
  37. MULTI-VITAMIN [Concomitant]
     Indication: PRODUCT USED FOR UNKNOWN INDICATION
     Dosage: 1 DF, UID/QD
     Route: 048
     Dates: start: 20110818
  38. PROBIOTIC [Concomitant]
     Indication: PRODUCT USED FOR UNKNOWN INDICATION
     Dosage: 2 MG, BID
     Route: 048
     Dates: start: 20110818

REACTIONS (9)
  - DEHYDRATION [None]
  - STOMATITIS [None]
  - CONSTIPATION [None]
  - RASH [None]
  - HYPONATRAEMIA [None]
  - OESOPHAGEAL CANDIDIASIS [None]
  - OFF LABEL USE [None]
  - DYSPHAGIA [None]
  - FATIGUE [None]
